FAERS Safety Report 20757559 (Version 1)
Quarter: 2022Q2

REPORT INFORMATION
  Report Type: Spontaneous
  Country: CN (occurrence: CN)
  Receive Date: 20220427
  Receipt Date: 20220427
  Transmission Date: 20220721
  Serious: Yes (Hospitalization, Other)
  Sender: FDA-Public Use
  Company Number: CN-PFIZER INC-202200597717

PATIENT
  Age: 41 Year
  Sex: Female
  Weight: 39 kg

DRUGS (1)
  1. XELJANZ [Suspect]
     Active Substance: TOFACITINIB CITRATE
     Dosage: 5 MG, 2X/DAY
     Route: 048
     Dates: start: 20210601, end: 20210620

REACTIONS (6)
  - Sluggishness [Recovered/Resolved]
  - Taste disorder [Recovered/Resolved]
  - Cough [Unknown]
  - Asthma [Unknown]
  - Disease recurrence [Unknown]
  - Pyrexia [Unknown]

NARRATIVE: CASE EVENT DATE: 20210620
